FAERS Safety Report 6742669-2 (Version None)
Quarter: 2010Q2

REPORT INFORMATION
  Report Type: 
  Country: None (occurrence: None)
  Receive Date: 20100526
  Receipt Date: 20090526
  Transmission Date: 20101027
  Serious: No
  Sender: FDA-Public Use
  Company Number: US-ABBOTT-09P-163-0575756-00

PATIENT
  Sex: Female

DRUGS (7)
  1. ZEMPLAR [Suspect]
     Indication: HYPERPARATHYROIDISM
     Dates: start: 20090512
  2. TOPROL-XL [Concomitant]
     Indication: DRUG USE FOR UNKNOWN INDICATION
  3. PAXIL [Concomitant]
     Indication: DRUG USE FOR UNKNOWN INDICATION
  4. TRAZODONE HYDROCHLORIDE [Concomitant]
     Indication: DRUG USE FOR UNKNOWN INDICATION
  5. HORMONES NOS [Concomitant]
     Indication: DRUG USE FOR UNKNOWN INDICATION
  6. DARVOCET [Concomitant]
     Indication: PAIN IN EXTREMITY
  7. UNKNOWN MEDICATION FOR INDIGESTION [Concomitant]
     Indication: DYSPEPSIA

REACTIONS (1)
  - NECK PAIN [None]
